FAERS Safety Report 6091451-0 (Version None)
Quarter: 2009Q1

REPORT INFORMATION
  Report Type: 
  Country: None (occurrence: None)
  Receive Date: 20090225
  Receipt Date: 20090211
  Transmission Date: 20090719
  Serious: Yes (Hospitalization, Other)
  Sender: FDA-Public Use
  Company Number: US-ELI_LILLY_AND_COMPANY-US200901002257

PATIENT
  Sex: Female

DRUGS (9)
  1. FORTEO [Suspect]
     Indication: OSTEOPOROSIS
     Dosage: 20 UG, DAILY (1/D)
     Dates: start: 20080901, end: 20090112
  2. TRAMADOL HCL [Concomitant]
     Indication: HIP FRACTURE
  3. VITAMINS [Concomitant]
  4. MSM [Concomitant]
  5. PRILOSEC [Concomitant]
  6. CALCIUM WITH VITAMIN D [Concomitant]
  7. METOPROLOL [Concomitant]
  8. VITAMIN D [Concomitant]
  9. HYDROCHLOROTHIAZIDE [Concomitant]

REACTIONS (5)
  - ABDOMINAL PAIN UPPER [None]
  - EATING DISORDER [None]
  - PAIN [None]
  - SLEEP DISORDER [None]
  - TRANSIENT ISCHAEMIC ATTACK [None]
